FAERS Safety Report 10416572 (Version 2)
Quarter: 2014Q4

REPORT INFORMATION
  Report Type: Spontaneous
  Country: US (occurrence: US)
  Receive Date: 20140828
  Receipt Date: 20141001
  Transmission Date: 20150528
  Serious: Yes (Hospitalization)
  Sender: FDA-Public Use
  Company Number: US-TEVA-495768USA

PATIENT
  Age: 43 Year
  Sex: Female

DRUGS (1)
  1. PROAIR HFA [Suspect]
     Active Substance: ALBUTEROL SULFATE
     Dates: start: 201211

REACTIONS (2)
  - Drug administration error [Unknown]
  - Blood pressure [Unknown]

NARRATIVE: CASE EVENT DATE: 201407
